FAERS Safety Report 5212337-7 (Version None)
Quarter: 2006Q4

REPORT INFORMATION
  Report Type: 
  Country: None (occurrence: None)
  Receive Date: 20061130
  Receipt Date: 20060621
  Transmission Date: 20070319
  Serious: Yes (Disabling, Other)
  Sender: FDA-Public Use
  Company Number: WAES 0506USA02139

PATIENT
  Age: 65 Year
  Sex: Female
  Weight: 69.4003 kg

DRUGS (7)
  1. FOSAMAX [Suspect]
     Indication: OSTEOPOROSIS
     Dosage: 70 MG/WKY/PO
     Route: 048
     Dates: start: 20030602, end: 20040201
  2. ACIPHEX [Concomitant]
  3. DIOVAN HCT [Concomitant]
  4. NEURONTIN [Concomitant]
  5. ZOCOR [Concomitant]
  6. AMITRIPTYLINE HYDROCHLORIDE [Concomitant]
  7. DILTIAZEM HYDROCHLORIDE [Concomitant]

REACTIONS (1)
  - OSTEONECROSIS [None]
